FAERS Safety Report 11159889 (Version 7)
Quarter: 2017Q2

REPORT INFORMATION
  Report Type: Report from Study
  Country: US (occurrence: US)
  Receive Date: 20150603
  Receipt Date: 20170403
  Transmission Date: 20170829
  Serious: Yes (Other)
  Sender: FDA-Public Use
  Company Number: US-EISAI MEDICAL RESEARCH-EC-2015-006844

PATIENT
  Age: 73 Year
  Sex: Male
  Weight: 79 kg

DRUGS (27)
  1. LENVIMA [Suspect]
     Active Substance: LENVATINIB
     Route: 048
     Dates: start: 2015, end: 20150506
  2. CALTRATE [Concomitant]
     Active Substance: CALCIUM CARBONATE
  3. SUTENT [Concomitant]
     Active Substance: SUNITINIB MALATE
  4. FLOMAX [Concomitant]
     Active Substance: TAMSULOSIN HYDROCHLORIDE
  5. CARDIZEM [Concomitant]
     Active Substance: DILTIAZEM HYDROCHLORIDE
  6. PRILOSEC [Concomitant]
     Active Substance: OMEPRAZOLE MAGNESIUM
  7. LACTULOSE. [Concomitant]
     Active Substance: LACTULOSE
  8. LENVIMA [Suspect]
     Active Substance: LENVATINIB
     Route: 048
     Dates: start: 201506, end: 20150716
  9. LENVIMA [Suspect]
     Active Substance: LENVATINIB
     Route: 048
  10. METFORMIN [Concomitant]
     Active Substance: METFORMIN HYDROCHLORIDE
  11. TURMERIC [Concomitant]
     Active Substance: HERBALS\TURMERIC
  12. LEVOXYL [Concomitant]
     Active Substance: LEVOTHYROXINE SODIUM
  13. WELCHOL [Concomitant]
     Active Substance: COLESEVELAM HYDROCHLORIDE
  14. DILTIAZEM. [Concomitant]
     Active Substance: DILTIAZEM
  15. LENVIMA [Suspect]
     Active Substance: LENVATINIB
     Indication: THYROID NEOPLASM
     Route: 048
     Dates: start: 20150311, end: 2015
  16. ATENOLOL. [Concomitant]
     Active Substance: ATENOLOL
  17. HYDROCHLOROTHIAZIDE. [Concomitant]
     Active Substance: HYDROCHLOROTHIAZIDE
  18. LISINOPRIL. [Concomitant]
     Active Substance: LISINOPRIL
  19. BENADRYL [Concomitant]
     Active Substance: DIPHENHYDRAMINE HYDROCHLORIDE
  20. LENVIMA [Suspect]
     Active Substance: LENVATINIB
     Route: 048
     Dates: start: 20150924, end: 2016
  21. MUCINEX [Concomitant]
     Active Substance: GUAIFENESIN
  22. COD LIVER OIL [Concomitant]
     Active Substance: COD LIVER OIL
  23. LENVIMA [Suspect]
     Active Substance: LENVATINIB
     Route: 048
     Dates: start: 2016, end: 2016
  24. OMEGA 3 [Concomitant]
     Active Substance: OMEGA-3 FATTY ACIDS
  25. TAMSULOSIN [Concomitant]
     Active Substance: TAMSULOSIN
  26. CALCIUM + D [Concomitant]
     Active Substance: CALCIUM\VITAMIN D
  27. GUAIFENESIN. [Concomitant]
     Active Substance: GUAIFENESIN

REACTIONS (15)
  - Hypertension [Recovered/Resolved]
  - Hiccups [Unknown]
  - Nausea [Unknown]
  - Hepatotoxicity [Not Recovered/Not Resolved]
  - Drug dose omission [Recovered/Resolved]
  - Blood test abnormal [Unknown]
  - Sleep disorder [Unknown]
  - Fatigue [Unknown]
  - Palmar-plantar erythrodysaesthesia syndrome [Recovered/Resolved]
  - Pain in extremity [Recovered/Resolved]
  - Posterior reversible encephalopathy syndrome [Recovering/Resolving]
  - Hyperammonaemia [Recovered/Resolved]
  - Hyperbilirubinaemia [Recovered/Resolved]
  - Feeling cold [Not Recovered/Not Resolved]
  - Hepatic enzyme increased [Recovered/Resolved]

NARRATIVE: CASE EVENT DATE: 2015
